FAERS Safety Report 15221622 (Version 1)
Quarter: 2018Q3

REPORT INFORMATION
  Report Type: Spontaneous
  Country: US (occurrence: US)
  Receive Date: 20180705
  Receipt Date: 20180705
  Transmission Date: 20181010
  Serious: No
  Sender: FDA-Public Use
  Company Number: None

PATIENT
  Age: 52 Year
  Sex: Female

DRUGS (1)
  1. HAWAIIAN TROPIC ISLAND SPORT SPF 30 [Suspect]
     Active Substance: AVOBENZONE\OCTOCRYLENE\OXYBENZONE

REACTIONS (5)
  - Swelling [None]
  - Pain [None]
  - Blister [None]
  - Gait inability [None]
  - Inflammation [None]
